FAERS Safety Report 7831788-5 (Version None)
Quarter: 2011Q4

REPORT INFORMATION
  Report Type: 
  Country: None (occurrence: None)
  Receive Date: 20111021
  Receipt Date: 20111017
  Transmission Date: 20120403
  Serious: Yes (Other)
  Sender: FDA-Public Use
  Company Number: US-PFIZER INC-2011249276

PATIENT
  Sex: Male
  Weight: 79.819 kg

DRUGS (1)
  1. VIAGRA [Suspect]
     Indication: ERECTILE DYSFUNCTION
     Dosage: UNK, AS NEEDED
     Route: 048
     Dates: start: 20110101

REACTIONS (6)
  - PALPITATIONS [None]
  - FEELING HOT [None]
  - HEADACHE [None]
  - PAIN IN EXTREMITY [None]
  - FEELING ABNORMAL [None]
  - PARAESTHESIA [None]
